FAERS Safety Report 4439941-8 (Version None)
Quarter: 2004Q3

REPORT INFORMATION
  Report Type: 
  Country: None (occurrence: None)
  Receive Date: 20040831
  Receipt Date: 20040723
  Transmission Date: 20050211
  Serious: No
  Sender: FDA-Public Use
  Company Number: 701645

PATIENT
  Age: 69 Year
  Sex: Male
  Weight: 83.9154 kg

DRUGS (12)
  1. AMEVIVE [Suspect]
     Indication: PSORIASIS
     Dosage: 15 MG QW IM
     Route: 030
     Dates: start: 20031201, end: 20040101
  2. DIOVAN [Concomitant]
  3. FUROSEMIDE [Concomitant]
  4. APO-CARVEDILOL [Concomitant]
  5. ALLOPURINOL [Concomitant]
  6. ASPIRIN [Concomitant]
  7. APO-PRAVASTATIN [Concomitant]
  8. MAG 64 [Concomitant]
  9. ALDACTONE [Concomitant]
  10. PRILOSEC [Concomitant]
  11. WARFARIN SODIUM [Concomitant]
  12. POT CHLORIDE [Concomitant]

REACTIONS (2)
  - DRUG INTERACTION [None]
  - PROTHROMBIN LEVEL DECREASED [None]
